FAERS Safety Report 10564864 (Version 1)
Quarter: 2014Q4

REPORT INFORMATION
  Report Type: Spontaneous
  Country: GB (occurrence: GB)
  Receive Date: 20141105
  Receipt Date: 20141105
  Transmission Date: 20150529
  Serious: Yes (Hospitalization)
  Sender: FDA-Public Use
  Company Number: GB-AUROBINDO-AUR-APL-2014-11402

PATIENT
  Age: 61 Year

DRUGS (8)
  1. CARBOCISTEINE [Concomitant]
     Active Substance: CARBOCYSTEINE
     Indication: PRODUCT USED FOR UNKNOWN INDICATION
     Dosage: 375 MG, 3 TIMES A DAY
     Route: 048
  2. DALTEPARIN [Concomitant]
     Active Substance: DALTEPARIN
     Indication: THROMBOSIS PROPHYLAXIS
     Dosage: 500 IU, UNK
     Route: 058
  3. AMOXICILLIN 500MG [Suspect]
     Active Substance: AMOXICILLIN
     Indication: INFECTIVE EXACERBATION OF CHRONIC OBSTRUCTIVE AIRWAYS DISEASE
     Dosage: 500 MG, 3 TIMES A DAY
     Route: 048
     Dates: start: 20141009, end: 20141014
  4. GABAPENTIN. [Concomitant]
     Active Substance: GABAPENTIN
     Indication: PRODUCT USED FOR UNKNOWN INDICATION
     Dosage: 300 MG, 3 TIMES A DAY
     Route: 048
  5. PREDNISOLONE. [Concomitant]
     Active Substance: PREDNISOLONE
     Indication: INFECTIVE EXACERBATION OF CHRONIC OBSTRUCTIVE AIRWAYS DISEASE
     Dosage: 30 MG, ONCE A DAY
     Route: 048
     Dates: start: 20141008
  6. CO-AMOXICLAV                       /01000301/ [Suspect]
     Active Substance: AMOXICILLIN\CLAVULANATE POTASSIUM
     Indication: INFECTIVE EXACERBATION OF CHRONIC OBSTRUCTIVE AIRWAYS DISEASE
     Dosage: 1.2 G, ONCE A DAY
     Route: 042
     Dates: start: 20141008, end: 20141009
  7. SERETIDE [Concomitant]
     Active Substance: FLUTICASONE FUROATE\SALMETEROL XINAFOATE
     Indication: PRODUCT USED FOR UNKNOWN INDICATION
     Dosage: 1 DF, TWO TIMES A DAY
  8. TRAMADOL [Concomitant]
     Active Substance: TRAMADOL
     Indication: PRODUCT USED FOR UNKNOWN INDICATION
     Dosage: 100 MG, 3 TIMES A DAY
     Route: 048

REACTIONS (6)
  - Liver function test abnormal [Recovering/Resolving]
  - Pancreatic disorder [Unknown]
  - Hepatomegaly [Unknown]
  - Liver disorder [None]
  - Hepatitis [None]
  - Pancreatic atrophy [None]

NARRATIVE: CASE EVENT DATE: 20141012
